FAERS Safety Report 12309619 (Version 1)
Quarter: 2016Q2

REPORT INFORMATION
  Report Type: Spontaneous
  Country: US (occurrence: None)
  Receive Date: 20160426
  Receipt Date: 20160426
  Transmission Date: 20160815
  Serious: No
  Sender: FDA-Public Use
  Company Number: None

PATIENT
  Age: 27 Year
  Sex: Male

DRUGS (2)
  1. ORENCIA [Suspect]
     Active Substance: ABATACEPT
     Indication: RHEUMATOID ARTHRITIS
     Route: 058
     Dates: start: 20150608
  2. ORENCIA [Suspect]
     Active Substance: ABATACEPT
     Indication: MYOPATHY
     Route: 058
     Dates: start: 20150608

REACTIONS (3)
  - Pyrexia [None]
  - Throat irritation [None]
  - Immune system disorder [None]
